FAERS Safety Report 9616579 (Version 2)
Quarter: 2014Q1

REPORT INFORMATION
  Report Type: Spontaneous
  Country: DE (occurrence: DE)
  Receive Date: 20131011
  Receipt Date: 20140214
  Transmission Date: 20141002
  Serious: No
  Sender: FDA-Public Use
  Company Number: DE-SA-2013SA100141

PATIENT
  Sex: Female
  Weight: 79 kg

DRUGS (3)
  1. ARAVA [Suspect]
     Indication: PRODUCT USED FOR UNKNOWN INDICATION
     Route: 048
     Dates: start: 201203, end: 20130218
  2. CORTISONE [Concomitant]
     Route: 048
  3. FEMIBION [Concomitant]
     Route: 048

REACTIONS (1)
  - Exposure during pregnancy [Unknown]
